FAERS Safety Report 9392393 (Version 1)
Quarter: 2013Q3

REPORT INFORMATION
  Report Type: Spontaneous
  Country: US (occurrence: None)
  Receive Date: 20130708
  Receipt Date: 20130708
  Transmission Date: 20140515
  Serious: Yes (Other)
  Sender: FDA-Public Use
  Company Number: None

PATIENT
  Age: 45 Year
  Sex: Female
  Weight: 80.74 kg

DRUGS (4)
  1. FLOVENT [Suspect]
     Indication: COUGH
     Dosage: 110 MCG 2 PUFF TWICE DAILY INHALED
     Route: 055
     Dates: start: 20130612, end: 20130628
  2. FLOVENT [Suspect]
     Indication: ASTHMA
     Dosage: 110 MCG 2 PUFF TWICE DAILY INHALED
     Route: 055
     Dates: start: 20130612, end: 20130628
  3. LISINOPRIL [Concomitant]
  4. ZYRTEC [Concomitant]

REACTIONS (3)
  - Nausea [None]
  - Eructation [None]
  - Vomiting [None]
